FAERS Safety Report 21712321 (Version 1)
Quarter: 2022Q4

REPORT INFORMATION
  Report Type: Spontaneous
  Country: US (occurrence: US)
  Receive Date: 20221212
  Receipt Date: 20221212
  Transmission Date: 20230113
  Serious: Yes (Other)
  Sender: FDA-Public Use
  Company Number: US-ASTELLAS-2022US037715

PATIENT
  Age: 67 Year
  Sex: Male

DRUGS (1)
  1. MYRBETRIQ [Suspect]
     Active Substance: MIRABEGRON
     Indication: Hypertonic bladder
     Route: 065
     Dates: end: 202209

REACTIONS (10)
  - Lyme disease [Unknown]
  - Bell^s palsy [Unknown]
  - Pulmonary embolism [Unknown]
  - Meningitis [Unknown]
  - Illness [Unknown]
  - Vertigo [Unknown]
  - Asthenia [Unknown]
  - COVID-19 [Unknown]
  - Inability to afford medication [Unknown]
  - Insurance issue [Unknown]

NARRATIVE: CASE EVENT DATE: 20220101
